FAERS Safety Report 9381704 (Version 3)
Quarter: 2013Q3

REPORT INFORMATION
  Report Type: Spontaneous
  Country: IT (occurrence: IT)
  Receive Date: 20130703
  Receipt Date: 20130828
  Transmission Date: 20140515
  Serious: Yes (Hospitalization)
  Sender: FDA-Public Use
  Company Number: IT-NOVOPROD-381512

PATIENT
  Age: 86 Year
  Sex: Female

DRUGS (8)
  1. NOVONORM [Suspect]
     Indication: HYPERGLYCAEMIA
     Dosage: 2 MG/DIE
     Route: 048
     Dates: start: 20130415, end: 20130426
  2. TAMOXIFENE [Concomitant]
  3. KARVEA [Concomitant]
  4. LANSOX [Concomitant]
  5. LANOXIN [Concomitant]
  6. CARDIOASPIRIN [Concomitant]
  7. DELTACORTENE [Concomitant]
     Dosage: 12.50 MG
     Dates: start: 20130415, end: 20130426
  8. NORVASC [Concomitant]

REACTIONS (2)
  - Hypoglycaemia [Recovered/Resolved]
  - Sopor [Recovered/Resolved]
